FAERS Safety Report 18660922 (Version 1)
Quarter: 2020Q4

REPORT INFORMATION
  Report Type: Spontaneous
  Country: US (occurrence: US)
  Receive Date: 20201224
  Receipt Date: 20201224
  Transmission Date: 20210114
  Serious: Yes (Disabling)
  Sender: FDA-Public Use
  Company Number: None

PATIENT
  Age: 35 Year
  Sex: Male
  Weight: 85.5 kg

DRUGS (3)
  1. QVAR [Suspect]
     Active Substance: BECLOMETHASONE DIPROPIONATE
     Indication: ASTHMA
     Dosage: ?          QUANTITY:1 INHALATION(S);?
     Route: 055
  2. FLAX SEED OIL GEL CAP [Concomitant]
  3. CLARITIN OTC [Concomitant]

REACTIONS (5)
  - Asthma [None]
  - Product design issue [None]
  - Device malfunction [None]
  - Incorrect dose administered [None]
  - Discomfort [None]

NARRATIVE: CASE EVENT DATE: 20201201
